FAERS Safety Report 8905708 (Version 5)
Quarter: 2014Q4

REPORT INFORMATION
  Report Type: Report from Study
  Country: US (occurrence: US)
  Receive Date: 20121113
  Receipt Date: 20141006
  Transmission Date: 20150529
  Serious: Yes (Death, Hospitalization)
  Sender: FDA-Public Use
  Company Number: US-009507513-1211USA004428

PATIENT
  Age: 69 Year
  Sex: Female
  Weight: 53.5 kg

DRUGS (7)
  1. VORINOSTAT [Suspect]
     Active Substance: VORINOSTAT
     Dosage: 400 MG, QD ON DAYS 1-14, CYCLE 21 DAYS
     Route: 048
     Dates: start: 20121017, end: 20121030
  2. VORINOSTAT [Suspect]
     Active Substance: VORINOSTAT
     Indication: B-CELL LYMPHOMA
     Dosage: 400 MG, QD ON DAYS 1-14, CYCLE 21 DAYS
     Route: 048
     Dates: start: 20120926, end: 20121009
  3. MLN8237 [Suspect]
     Active Substance: ALISERTIB
     Indication: B-CELL LYMPHOMA
     Dosage: 30 MG, BID ON DAYS 1-7, CYCLE 21 DAYS
     Route: 048
     Dates: start: 20120926, end: 20121002
  4. MLN8237 [Suspect]
     Active Substance: ALISERTIB
     Dosage: UNK
  5. MAGNESIUM CITRATE. [Suspect]
     Active Substance: MAGNESIUM CITRATE
  6. MLN8237 [Suspect]
     Active Substance: ALISERTIB
     Dosage: 30 MG, BID ON DAYS 1-7, CYCLE 21 DAYS
     Route: 048
     Dates: start: 20121017, end: 20121023
  7. CYCLOPHOSPHAMIDE (+) DOXORUBICIN (+) PREDNISONE (+) VINCRISTINE SULFAT [Suspect]
     Active Substance: CYCLOPHOSPHAMIDE\DOXORUBICIN\PREDNISONE\VINCRISTINE

REACTIONS (17)
  - Anaemia [Recovered/Resolved]
  - Left ventricular dysfunction [Fatal]
  - Vomiting [None]
  - Dyspnoea exertional [None]
  - Atrial fibrillation [None]
  - Nausea [None]
  - Chest discomfort [None]
  - Pericardial effusion [None]
  - Pulmonary valve incompetence [None]
  - Diarrhoea [None]
  - Dehydration [None]
  - Gastric haemorrhage [Unknown]
  - Fatigue [None]
  - Disease progression [None]
  - Mitral valve incompetence [None]
  - Pleural effusion [None]
  - Tricuspid valve incompetence [None]

NARRATIVE: CASE EVENT DATE: 20121107
